FAERS Safety Report 11900425 (Version 1)
Quarter: 2016Q1

REPORT INFORMATION
  Report Type: Spontaneous
  Country: US (occurrence: US)
  Receive Date: 20160108
  Receipt Date: 20160108
  Transmission Date: 20160526
  Serious: No
  Sender: FDA-Public Use
  Company Number: US-WATSON-2015-00501

PATIENT

DRUGS (1)
  1. GENERESS FE [Suspect]
     Active Substance: ETHINYL ESTRADIOL\FERROUS FUMARATE\NORETHINDRONE
     Indication: ORAL CONTRACEPTION
     Dosage: UNK UNK, UNKNOWN
     Route: 048

REACTIONS (5)
  - Drug dose omission [Unknown]
  - Menstruation irregular [Unknown]
  - Abdominal discomfort [Unknown]
  - Diarrhoea [Unknown]
  - Intentional product misuse [Unknown]
